FAERS Safety Report 14374659 (Version 1)
Quarter: 2018Q1

REPORT INFORMATION
  Report Type: Spontaneous
  Country: BR (occurrence: BR)
  Receive Date: 20180111
  Receipt Date: 20180111
  Transmission Date: 20180509
  Serious: Yes (Death, Hospitalization)
  Sender: FDA-Public Use
  Company Number: BR-B.I. PHARMACEUTICALS,INC./RIDGEFIELD-2018-BI-001069

PATIENT
  Age: 80 Year
  Sex: Male
  Weight: 86 kg

DRUGS (12)
  1. SINVASTATINA [Concomitant]
     Active Substance: SIMVASTATIN
     Indication: PROPHYLAXIS
  2. DIGOXINA [Concomitant]
     Active Substance: DIGOXIN
     Indication: CARDIOMEGALY
     Route: 048
     Dates: end: 20170407
  3. ENALAPRIL [Concomitant]
     Active Substance: ENALAPRIL
     Indication: HYPERTENSION
     Route: 048
     Dates: end: 20170407
  4. CILOSTAZOL. [Concomitant]
     Active Substance: CILOSTAZOL
     Indication: VENOUS OCCLUSION
     Route: 048
     Dates: end: 20170407
  5. PRADAXA [Suspect]
     Active Substance: DABIGATRAN ETEXILATE MESYLATE
     Indication: VENOUS OCCLUSION
     Route: 048
     Dates: start: 2016, end: 20170407
  6. CILOSTAZOL. [Concomitant]
     Active Substance: CILOSTAZOL
     Indication: PROPHYLAXIS
  7. DIGOXINA [Concomitant]
     Active Substance: DIGOXIN
     Indication: PROPHYLAXIS
  8. CLORANA [Concomitant]
     Active Substance: HYDROCHLOROTHIAZIDE
     Indication: DIURETIC THERAPY
     Route: 048
     Dates: start: 2008, end: 20170407
  9. AAS [Concomitant]
     Active Substance: ASPIRIN
     Indication: ANTICOAGULANT THERAPY
     Route: 048
     Dates: start: 2008, end: 20170407
  10. SINVASTATINA [Concomitant]
     Active Substance: SIMVASTATIN
     Indication: CARDIOMEGALY
     Route: 048
     Dates: end: 20170407
  11. PRADAXA [Suspect]
     Active Substance: DABIGATRAN ETEXILATE MESYLATE
     Indication: PROPHYLAXIS
  12. OMEPRAZOL [Concomitant]
     Active Substance: OMEPRAZOLE
     Indication: PROPHYLAXIS
     Route: 048
     Dates: start: 2008, end: 20170407

REACTIONS (2)
  - Multiple organ dysfunction syndrome [Fatal]
  - Gastroenteritis bacterial [Fatal]

NARRATIVE: CASE EVENT DATE: 201701
